FAERS Safety Report 8570384-1 (Version None)
Quarter: 2012Q3

REPORT INFORMATION
  Report Type: 
  Country: None (occurrence: None)
  Receive Date: 20120803
  Receipt Date: 20120730
  Transmission Date: 20120928
  Serious: Yes (Life-Threatening)
  Sender: FDA-Public Use
  Company Number: GB-ASTRAZENECA-2012SE53796

PATIENT
  Age: 72 Year
  Sex: Female

DRUGS (6)
  1. ATORVASTATIN [Concomitant]
     Route: 048
  2. ADCAL- D3 [Concomitant]
     Route: 048
  3. ATENOLOL [Suspect]
     Route: 048
  4. ADCAL- D3 [Concomitant]
     Route: 048
  5. DILTIAZEM HYDROCHLORIDE [Suspect]
     Route: 048
  6. PERINDOPRIL ERBUMINE [Concomitant]
     Route: 048

REACTIONS (4)
  - CARDIAC ARREST [None]
  - SYNCOPE [None]
  - CIRCULATORY COLLAPSE [None]
  - ATRIOVENTRICULAR BLOCK COMPLETE [None]
